FAERS Safety Report 8143253-9 (Version None)
Quarter: 2012Q1

REPORT INFORMATION
  Report Type: 
  Country: None (occurrence: None)
  Receive Date: 20120217
  Receipt Date: 20120213
  Transmission Date: 20120608
  Serious: Yes (Other)
  Sender: FDA-Public Use
  Company Number: US-PFIZER INC-2012039564

PATIENT
  Sex: Female
  Weight: 68.027 kg

DRUGS (2)
  1. PRISTIQ [Suspect]
     Indication: ANXIETY
     Dosage: 50 MG, ALTERNATE DAY
     Dates: start: 20120101, end: 20120206
  2. PRISTIQ [Suspect]
     Indication: DEPRESSION
     Dosage: 50 MG, 1X/DAY
     Route: 048
     Dates: start: 20110801, end: 20120101

REACTIONS (9)
  - SUICIDAL IDEATION [None]
  - DEPRESSION [None]
  - CONFUSIONAL STATE [None]
  - DIZZINESS [None]
  - LOSS OF CONSCIOUSNESS [None]
  - DYSPNOEA [None]
  - NAUSEA [None]
  - MALAISE [None]
  - WEIGHT DECREASED [None]
